FAERS Safety Report 15704312 (Version 1)
Quarter: 2018Q4

REPORT INFORMATION
  Report Type: Report from Study
  Country: DE (occurrence: DE)
  Receive Date: 20181210
  Receipt Date: 20181210
  Transmission Date: 20190205
  Serious: Yes (Disabling)
  Sender: FDA-Public Use
  Company Number: DE-ROCHE-2224370

PATIENT
  Sex: Male

DRUGS (2)
  1. ESBRIET [Suspect]
     Active Substance: PIRFENIDONE
     Indication: IDIOPATHIC PULMONARY FIBROSIS
     Route: 065
     Dates: start: 2013, end: 2017
  2. ESBRIET [Suspect]
     Active Substance: PIRFENIDONE
     Route: 065

REACTIONS (15)
  - General physical health deterioration [Unknown]
  - Fatigue [Unknown]
  - Cough [Unknown]
  - Weight decreased [Unknown]
  - Dysgeusia [Unknown]
  - Dyspnoea [Unknown]
  - Decreased appetite [Unknown]
  - Dysphonia [Unknown]
  - Malaise [Unknown]
  - Photosensitivity reaction [Unknown]
  - Asthenia [Unknown]
  - Pulmonary function test decreased [Unknown]
  - Secretion discharge [Unknown]
  - Pneumonia [Unknown]
  - Respiratory disorder [Unknown]

NARRATIVE: CASE EVENT DATE: 2013
